FAERS Safety Report 8232106-3 (Version None)
Quarter: 2012Q1

REPORT INFORMATION
  Report Type: 
  Country: None (occurrence: None)
  Receive Date: 20120323
  Receipt Date: 20120313
  Transmission Date: 20120608
  Serious: Yes (Other)
  Sender: FDA-Public Use
  Company Number: JP-BAYER-2012-014302

PATIENT
  Age: 52 Year
  Sex: Female
  Weight: 64 kg

DRUGS (4)
  1. MUCOSTA [Concomitant]
     Indication: ABDOMINAL PAIN
     Dosage: UNK
     Route: 048
  2. YAZ [Suspect]
     Indication: DYSMENORRHOEA
     Dosage: 1 DF, QD
     Route: 048
     Dates: start: 20120118, end: 20120228
  3. LEUPROLIDE ACETATE [Concomitant]
     Indication: UTERINE LEIOMYOMA
     Dosage: UNK
  4. LOBU [Concomitant]
     Indication: ABDOMINAL PAIN
     Dosage: UNK
     Route: 048

REACTIONS (2)
  - DYSPNOEA EXERTIONAL [None]
  - CARDIAC FAILURE CONGESTIVE [None]
